FAERS Safety Report 7764052-3 (Version None)
Quarter: 2011Q3

REPORT INFORMATION
  Report Type: 
  Country: None (occurrence: None)
  Receive Date: 20110921
  Receipt Date: 20110916
  Transmission Date: 20111222
  Serious: Yes (Other)
  Sender: FDA-Public Use
  Company Number: US-PFIZER INC-2011220458

PATIENT
  Sex: Female
  Weight: 49.4 kg

DRUGS (3)
  1. LEXAPRO [Concomitant]
     Indication: ANXIETY
     Dosage: UNK
  2. ADVIL LIQUI-GELS [Suspect]
     Indication: HEADACHE
     Dosage: 200 MG, 2X/DAY
     Route: 048
  3. PREMPRO [Concomitant]
     Indication: HORMONE LEVEL ABNORMAL
     Dosage: UNK

REACTIONS (1)
  - HYPERTENSION [None]
